FAERS Safety Report 6979962-4 (Version None)
Quarter: 2010Q3

REPORT INFORMATION
  Report Type: 
  Country: None (occurrence: None)
  Receive Date: 20100914
  Receipt Date: 20100903
  Transmission Date: 20110219
  Serious: Yes (Hospitalization, Congenital Anomaly, Other)
  Sender: FDA-Public Use
  Company Number: SE-BAYER-201038892GPV

PATIENT
  Sex: Male

DRUGS (3)
  1. MIRENA [Suspect]
     Dosage: TOTAL DAILY DOSE: 20 ?G/D
     Route: 064
     Dates: end: 20091123
  2. SUMATRIPTAN SUCCINATE [Concomitant]
     Route: 064
  3. POSTAFEN [Concomitant]
     Route: 064

REACTIONS (2)
  - FALLOT'S TETRALOGY [None]
  - FOETAL GROWTH RESTRICTION [None]
